FAERS Safety Report 4556218-0 (Version None)
Quarter: 2005Q1

REPORT INFORMATION
  Report Type: 
  Country: None (occurrence: None)
  Receive Date: 20050103
  Receipt Date: 20040823
  Transmission Date: 20050727
  Serious: Yes (Other)
  Sender: FDA-Public Use
  Company Number: 2004UW17927

PATIENT
  Age: 66 Year
  Sex: Male
  Weight: 143.7903 kg

DRUGS (7)
  1. CRESTOR [Suspect]
     Indication: BLOOD CHOLESTEROL INCREASED
     Dosage: 10 MG PO
     Route: 048
     Dates: start: 20040801
  2. PROTONIX [Concomitant]
  3. COUMADIN [Concomitant]
  4. CORGARD [Concomitant]
  5. FOSINOPRIL SODIUM [Concomitant]
  6. CALAN [Concomitant]
  7. TRICOR [Concomitant]

REACTIONS (4)
  - ASTHENIA [None]
  - BOWEL SOUNDS ABNORMAL [None]
  - DIARRHOEA [None]
  - NAUSEA [None]
